FAERS Safety Report 19798057 (Version 2)
Quarter: 2022Q1

REPORT INFORMATION
  Report Type: Report from Study
  Country: CH (occurrence: CH)
  Receive Date: 20210907
  Receipt Date: 20220107
  Transmission Date: 20220423
  Serious: Yes (Hospitalization, Other)
  Sender: FDA-Public Use
  Company Number: CH-TAKEDA-2021TUS053605

PATIENT
  Age: 57 Year
  Sex: Male
  Weight: 86 kg

DRUGS (13)
  1. ANTIHEMOPHILIC FACTOR, PEGYLATED (MW 20000) HUMAN SEQUENCE RECOMBINANT [Suspect]
     Active Substance: ANTIHEMOPHILIC FACTOR, PEGYLATED (MW 20000) HUMAN SEQUENCE RECOMBINANT
     Indication: Prophylaxis
     Dosage: 3000 INTERNATIONAL UNIT
     Route: 042
     Dates: start: 20210711
  2. ANTIHEMOPHILIC FACTOR, PEGYLATED (MW 20000) HUMAN SEQUENCE RECOMBINANT [Suspect]
     Active Substance: ANTIHEMOPHILIC FACTOR, PEGYLATED (MW 20000) HUMAN SEQUENCE RECOMBINANT
     Indication: Prophylaxis
     Dosage: 3000 INTERNATIONAL UNIT
     Route: 042
     Dates: start: 20210711
  3. ANTIHEMOPHILIC FACTOR, PEGYLATED (MW 20000) HUMAN SEQUENCE RECOMBINANT [Suspect]
     Active Substance: ANTIHEMOPHILIC FACTOR, PEGYLATED (MW 20000) HUMAN SEQUENCE RECOMBINANT
     Indication: Prophylaxis
     Dosage: 3000 INTERNATIONAL UNIT
     Route: 042
     Dates: start: 20210711
  4. ACETALGIN [Concomitant]
     Indication: Arthralgia
     Dosage: 500 MILLIGRAM, 2/WEEK
     Route: 065
     Dates: start: 2006
  5. CELECOXIB [Concomitant]
     Active Substance: CELECOXIB
     Dosage: 200 MILLIGRAM, 1/WEEK
     Route: 065
     Dates: start: 20200123
  6. DAFALGAN [Concomitant]
     Active Substance: ACETAMINOPHEN
     Indication: Procedural pain
     Dosage: 1 GRAM, QID
     Route: 065
     Dates: start: 20121214, end: 20121225
  7. DAFALGAN [Concomitant]
     Active Substance: ACETAMINOPHEN
     Indication: Haemophilic arthropathy
     Dosage: 2000 MILLIGRAM, QID
     Dates: start: 20210721
  8. EPCLUSA [Concomitant]
     Active Substance: SOFOSBUVIR\VELPATASVIR
     Indication: Hepatitis C
     Dosage: 1 DOSAGE FORM, QD
     Route: 065
     Dates: start: 20190916, end: 20191209
  9. METAMIZOLE [Concomitant]
     Active Substance: METAMIZOLE
     Indication: Procedural pain
     Dosage: 500 MILLIGRAM, QID
     Route: 065
     Dates: start: 20121214, end: 20121225
  10. METAMIZOLE [Concomitant]
     Active Substance: METAMIZOLE
     Indication: Haemophilic arthropathy
     Dosage: 2000 MILLIGRAM, QID
     Route: 065
     Dates: start: 20210721
  11. TRAMADOL [Concomitant]
     Active Substance: TRAMADOL
     Indication: Arthralgia
     Dosage: 20 GTT DROPS
     Route: 065
     Dates: start: 2010, end: 202001
  12. TRAMADOL [Concomitant]
     Active Substance: TRAMADOL
     Dosage: 10 GTT DROPS, 2/WEEK
     Route: 065
     Dates: start: 20200123
  13. VITAMIN D [Concomitant]
     Active Substance: VITAMIN D NOS
     Indication: Vitamin D deficiency
     Dosage: 10 GTT DROPS, QD
     Route: 065
     Dates: start: 20170417, end: 2017

REACTIONS (2)
  - Haemophilic arthropathy [Recovered/Resolved]
  - Condition aggravated [Recovered/Resolved]

NARRATIVE: CASE EVENT DATE: 20210715
